FAERS Safety Report 12190822 (Version 1)
Quarter: 2016Q1

REPORT INFORMATION
  Report Type: Spontaneous
  Country: RU (occurrence: RU)
  Receive Date: 20160318
  Receipt Date: 20160318
  Transmission Date: 20160526
  Serious: Yes (Other)
  Sender: FDA-Public Use
  Company Number: RU-VIIV HEALTHCARE LIMITED-RU2016GSK037436

PATIENT
  Sex: Female

DRUGS (3)
  1. COMBIVIR [Suspect]
     Active Substance: LAMIVUDINE\ZIDOVUDINE
     Indication: HIV INFECTION
  2. LAMIVUDINE. [Suspect]
     Active Substance: LAMIVUDINE
     Indication: HIV INFECTION
  3. STOCRIN [Suspect]
     Active Substance: EFAVIRENZ
     Indication: HIV INFECTION

REACTIONS (8)
  - Insomnia [Unknown]
  - Memory impairment [Unknown]
  - Dizziness [Unknown]
  - Depressed level of consciousness [Unknown]
  - Depression [Not Recovered/Not Resolved]
  - Feeling cold [Unknown]
  - Disorientation [Unknown]
  - Headache [Unknown]
